FAERS Safety Report 18313603 (Version 2)
Quarter: 2022Q2

REPORT INFORMATION
  Report Type: Report from Study
  Country: US (occurrence: US)
  Receive Date: 20200925
  Receipt Date: 20220513
  Transmission Date: 20220721
  Serious: No
  Sender: FDA-Public Use
  Company Number: US-TEVA-2020-US-1831880

PATIENT
  Age: 34 Year
  Sex: Female
  Weight: 68.04 kg

DRUGS (6)
  1. CLOZAPINE [Suspect]
     Active Substance: CLOZAPINE
     Route: 065
  2. CLOZAPINE [Suspect]
     Active Substance: CLOZAPINE
     Route: 065
  3. QUETIAPINE [Suspect]
     Active Substance: QUETIAPINE
     Route: 065
  4. DEPAKOTE [Concomitant]
     Active Substance: DIVALPROEX SODIUM
  5. WARFARIN [Concomitant]
     Active Substance: WARFARIN
  6. HALDOL DECANOATE [Concomitant]
     Active Substance: HALOPERIDOL DECANOATE

REACTIONS (1)
  - Drug level increased [Recovered/Resolved]
